FAERS Safety Report 7199206-0 (Version None)
Quarter: 2010Q4

REPORT INFORMATION
  Report Type: 
  Country: None (occurrence: None)
  Receive Date: 20101228
  Receipt Date: 20101215
  Transmission Date: 20110411
  Serious: Yes (Other)
  Sender: FDA-Public Use
  Company Number: PHHY2010JP85631

PATIENT

DRUGS (1)
  1. TEGRETOL [Suspect]

REACTIONS (1)
  - ELECTROCARDIOGRAM QT SHORTENED [None]
